FAERS Safety Report 4646734-5 (Version None)
Quarter: 2005Q2

REPORT INFORMATION
  Report Type: 
  Country: None (occurrence: None)
  Receive Date: 20050427
  Receipt Date: 20050422
  Transmission Date: 20051028
  Serious: Yes (Death, Life-Threatening)
  Sender: FDA-Public Use
  Company Number: FR-GLAXOSMITHKLINE-B0378917A

PATIENT
  Age: 28 Year
  Sex: Male

DRUGS (7)
  1. VENTOLIN [Suspect]
     Dosage: 1UNIT MONTHLY
  2. RIVOTRIL [Suspect]
     Indication: PSYCHOTIC DISORDER
     Dosage: 3MG FOUR TIMES PER DAY
     Route: 048
     Dates: end: 20050409
  3. SUBUTEX [Suspect]
     Dosage: 6MG PER DAY
     Route: 048
     Dates: start: 20050408, end: 20050409
  4. TERCIAN [Suspect]
     Dosage: 100MG FOUR TIMES PER DAY
     Route: 048
     Dates: start: 20050408, end: 20050409
  5. SERESTA [Suspect]
     Dosage: 50MG THREE TIMES PER DAY
     Route: 048
     Dates: start: 20050408, end: 20050409
  6. LYSANXIA [Concomitant]
     Indication: PSYCHOTIC DISORDER
  7. ARTANE [Concomitant]
     Indication: PSYCHOTIC DISORDER

REACTIONS (2)
  - SOMNOLENCE [None]
  - VOMITING [None]
